FAERS Safety Report 6640273-8 (Version None)
Quarter: 2010Q1

REPORT INFORMATION
  Report Type: 
  Country: None (occurrence: None)
  Receive Date: 20100303
  Receipt Date: 20091102
  Transmission Date: 20100710
  Serious: Yes (Other)
  Sender: FDA-Public Use
  Company Number: 2009292583

PATIENT
  Age: 17 Year
  Sex: Female

DRUGS (3)
  1. RELPAX [Suspect]
     Dosage: 40 MG
  2. SUMATRIPTAN SUCCINATE (IMITREX) [Suspect]
  3. CELEXA [Suspect]

REACTIONS (3)
  - BURNING SENSATION [None]
  - DRUG INEFFECTIVE [None]
  - SEROTONIN SYNDROME [None]
